FAERS Safety Report 11539306 (Version 8)
Quarter: 2018Q4

REPORT INFORMATION
  Report Type: Spontaneous
  Country: US (occurrence: US)
  Receive Date: 20150923
  Receipt Date: 20181113
  Transmission Date: 20190204
  Serious: No
  Sender: FDA-Public Use
  Company Number: US-PFIZER INC-2015317485

PATIENT
  Age: 11 Year
  Sex: Male

DRUGS (4)
  1. GENOTROPIN [Suspect]
     Active Substance: SOMATROPIN
     Dosage: 1.2 MG, DAILY (EVERY NIGHT)
     Route: 058
     Dates: start: 201506, end: 201506
  2. GENOTROPIN [Suspect]
     Active Substance: SOMATROPIN
     Dosage: 1.3 MG, DAILY
     Route: 058
     Dates: start: 201607
  3. GENOTROPIN [Suspect]
     Active Substance: SOMATROPIN
     Indication: GROWTH HORMONE DEFICIENCY
     Dosage: 1.6 MG, DAILY
     Route: 058
     Dates: start: 20150623
  4. GENOTROPIN [Suspect]
     Active Substance: SOMATROPIN
     Dosage: 0.8 MG, (RECEIVED A PARTIAL DOSE OF 0.8 MG OF THE 1.3 MG)
     Route: 058
     Dates: start: 201506

REACTIONS (6)
  - Poor quality product administered [Unknown]
  - Wrong technique in device usage process [Unknown]
  - Product complaint [Unknown]
  - Mood altered [Not Recovered/Not Resolved]
  - Underdose [Unknown]
  - Sluggishness [Not Recovered/Not Resolved]
